FAERS Safety Report 18445072 (Version 1)
Quarter: 2020Q4

REPORT INFORMATION
  Report Type: Spontaneous
  Country: US (occurrence: US)
  Receive Date: 20201030
  Receipt Date: 20201030
  Transmission Date: 20210114
  Serious: No
  Sender: FDA-Public Use
  Company Number: US-CIPLA LTD.-2020US06294

PATIENT

DRUGS (6)
  1. ARIPIPRAZOLE ACCORD [Concomitant]
     Active Substance: ARIPIPRAZOLE
     Indication: DEPRESSION
     Dosage: 15 MILLIGRAM, QD
     Route: 048
     Dates: start: 2018
  2. LAMICTAL [Concomitant]
     Active Substance: LAMOTRIGINE
     Indication: DEPRESSION
     Dosage: 200 MILLIGRAM, QD (ACCORD HEALTHIER)
     Route: 065
     Dates: start: 2018
  3. IPRATROPIUM BROMIDE/ALBUTEROL SULFATE [Concomitant]
     Active Substance: ALBUTEROL SULFATE\IPRATROPIUM BROMIDE
     Indication: ASTHMA
     Dosage: UNK, QID (ONE SOLUTION EVERY SIX HOURS), MYLAN PHARMACEUTICALS
     Route: 065
     Dates: start: 2018
  4. TRAZODONE [Concomitant]
     Active Substance: TRAZODONE HYDROCHLORIDE
     Indication: INSOMNIA
     Dosage: 200 MILLIGRAM, QD (AT BEDTIME) (TORRENT PHARMACY)
     Route: 065
     Dates: start: 2018
  5. SALBUTAMOL [Suspect]
     Active Substance: ALBUTEROL
     Dosage: UNK, AS EMERGENCY INHALER, CIPLA MANUFACTURER
     Dates: start: 20200827, end: 2020
  6. SALBUTAMOL [Suspect]
     Active Substance: ALBUTEROL
     Indication: ASTHMA
     Dosage: UNK, USES TO INHALE IT 6 HOURS ONCE

REACTIONS (8)
  - Inappropriate schedule of product administration [Unknown]
  - Device malfunction [Unknown]
  - Nausea [Recovered/Resolved]
  - Product dispensing error [Unknown]
  - Device difficult to use [Unknown]
  - Device use confusion [Unknown]
  - Expired product administered [Not Recovered/Not Resolved]
  - Dizziness [Recovered/Resolved]

NARRATIVE: CASE EVENT DATE: 202008
